FAERS Safety Report 9287196 (Version 2)
Quarter: 2013Q4

REPORT INFORMATION
  Report Type: Spontaneous
  Country: GB (occurrence: GB)
  Receive Date: 20130513
  Receipt Date: 20131028
  Transmission Date: 20140711
  Serious: Yes (Death)
  Sender: FDA-Public Use
  Company Number: GB-TEVA-403657ISR

PATIENT
  Age: 39 Year
  Sex: Male

DRUGS (2)
  1. CITALOPRAM [Suspect]
     Indication: DEPRESSION
     Dosage: 20 MILLIGRAM DAILY; 20 MG DAILY
     Route: 048
     Dates: start: 20111128
  2. AMISULPRIDE [Interacting]
     Indication: SCHIZOPHRENIA
     Dosage: 800 MILLIGRAM DAILY; 400 MG TWICE DAILY

REACTIONS (2)
  - Death [Fatal]
  - Drug interaction [Fatal]
